FAERS Safety Report 4514990-X (Version None)
Quarter: 2004Q4

REPORT INFORMATION
  Report Type: 
  Country: None (occurrence: None)
  Receive Date: 20041129
  Receipt Date: 20041129
  Transmission Date: 20050328
  Serious: No
  Sender: FDA-Public Use
  Company Number: None

PATIENT
  Age: 3 Year
  Sex: Male
  Weight: 16.1 kg

DRUGS (3)
  1. CHLORAL HYDRATE [Suspect]
     Indication: ECHOCARDIOGRAM
     Dosage: 1000 MG -PO X ONE @ 1030
     Route: 048
     Dates: start: 20040516
  2. TYLENOL W/ CODEINE [Suspect]
     Indication: PAIN
     Dosage: 12 MG @0300
     Dates: start: 20040514
  3. METHADONE HCL [Suspect]
     Indication: DRUG DETOXIFICATION
     Dosage: 1.5 MG PO @ 0600
     Route: 048
     Dates: start: 20040514

REACTIONS (1)
  - RESPIRATORY DEPRESSION [None]
